FAERS Safety Report 5071588-5 (Version None)
Quarter: 2006Q3

REPORT INFORMATION
  Report Type: 
  Country: None (occurrence: None)
  Receive Date: 20060803
  Receipt Date: 20060803
  Transmission Date: 20061208
  Serious: No
  Sender: FDA-Public Use
  Company Number: None

PATIENT
  Age: 45 Year
  Sex: Female
  Weight: 68.6 kg

DRUGS (7)
  1. AMITIZA [Suspect]
     Indication: CONSTIPATION
     Dosage: 24 MCG DAILY
     Dates: start: 20060501, end: 20060525
  2. AMITIZA [Suspect]
     Indication: IRRITABLE BOWEL SYNDROME
     Dosage: 24 MCG DAILY
     Dates: start: 20060501, end: 20060525
  3. ADVAIR POWDER DISKHALER [Concomitant]
  4. COMBIVENT MDI [Concomitant]
  5. LORAZEPAM [Concomitant]
  6. ACIPHEX [Concomitant]
  7. SERTRALINE [Concomitant]

REACTIONS (7)
  - BREAST ENGORGEMENT [None]
  - BREAST ENLARGEMENT [None]
  - CONDITION AGGRAVATED [None]
  - CONSTIPATION [None]
  - MENSTRUAL DISORDER [None]
  - MUSCLE SPASMS [None]
  - NIPPLE PAIN [None]
